FAERS Safety Report 5807431-3 (Version None)
Quarter: 2008Q3

REPORT INFORMATION
  Report Type: 
  Country: None (occurrence: None)
  Receive Date: 20080711
  Receipt Date: 20080704
  Transmission Date: 20090109
  Serious: Yes (Other)
  Sender: FDA-Public Use
  Company Number: JP-MERCK-0807USA01309

PATIENT
  Age: 20 Year
  Sex: Female

DRUGS (2)
  1. SINGULAIR [Suspect]
     Indication: ASTHMA
     Route: 048
     Dates: start: 20080701, end: 20080702
  2. ADOAIR [Concomitant]
     Indication: ASTHMA

REACTIONS (2)
  - DYSGEUSIA [None]
  - HYPOSMIA [None]
